FAERS Safety Report 5052490-1 (Version None)
Quarter: 2006Q3

REPORT INFORMATION
  Report Type: 
  Country: None (occurrence: None)
  Receive Date: 20060713
  Receipt Date: 20060713
  Transmission Date: 20061208
  Serious: Yes (Other)
  Sender: FDA-Public Use
  Company Number: None

PATIENT
  Sex: Male
  Weight: 175.9956 kg

DRUGS (4)
  1. TARCEVA [Suspect]
     Indication: NEOPLASM MALIGNANT
     Dosage: 100 MG, QD, PO
     Route: 048
     Dates: start: 20051201, end: 20060114
  2. AVASTIN [Suspect]
     Indication: NEOPLASM MALIGNANT
     Dosage: 10 MG/M2. Q 14 DAYS , IV
     Route: 042
     Dates: start: 20051114, end: 20060109
  3. CISPLATIN [Concomitant]
  4. RADIATION THERAPY [Concomitant]

REACTIONS (2)
  - DYSPHAGIA [None]
  - MUCOSAL INFLAMMATION [None]
